FAERS Safety Report 16156179 (Version 7)
Quarter: 2019Q3

REPORT INFORMATION
  Report Type: Report from Study
  Country: JP (occurrence: JP)
  Receive Date: 20190404
  Receipt Date: 20190903
  Transmission Date: 20191004
  Serious: No
  Sender: FDA-Public Use
  Company Number: JP-AMGEN-JPNCT2019053208

PATIENT
  Age: 73 Year
  Sex: Female
  Weight: 55.6 kg

DRUGS (60)
  1. CALCIUM LEVOFOLINATE [Concomitant]
     Active Substance: LEVOLEUCOVORIN CALCIUM
     Indication: COLON CANCER STAGE IV
     Dosage: 300 MILLIGRAM, Q2WEEKS
     Route: 041
     Dates: start: 20161125, end: 20170224
  2. CALCIUM LEVOFOLINATE [Concomitant]
     Active Substance: LEVOLEUCOVORIN CALCIUM
     Dosage: UNK
     Route: 041
     Dates: start: 20180420
  3. 5-FU [FLUOROURACIL] [Concomitant]
     Active Substance: FLUOROURACIL
     Dosage: 600 MILLIGRAM, Q2WK
     Route: 040
     Dates: start: 20170526, end: 20170915
  4. 5-FU [FLUOROURACIL] [Concomitant]
     Active Substance: FLUOROURACIL
     Dosage: 3650 MILLIGRAM, Q2WK
     Route: 041
     Dates: start: 20171013, end: 20171013
  5. 5-FU [FLUOROURACIL] [Concomitant]
     Active Substance: FLUOROURACIL
     Dosage: 600 MILLIGRAM, Q2WK
     Route: 040
     Dates: start: 20171110, end: 20171110
  6. 5-FU [FLUOROURACIL] [Concomitant]
     Active Substance: FLUOROURACIL
     Dosage: 600 MILLIGRAM, Q2WK
     Route: 040
     Dates: start: 20171215, end: 20171215
  7. 5-FU [FLUOROURACIL] [Concomitant]
     Active Substance: FLUOROURACIL
     Dosage: UNK
     Route: 040
     Dates: start: 20180112, end: 20180323
  8. 5-FU [FLUOROURACIL] [Concomitant]
     Active Substance: FLUOROURACIL
     Dosage: UNK
     Route: 040
     Dates: start: 20180420
  9. 5-FU [FLUOROURACIL] [Concomitant]
     Active Substance: FLUOROURACIL
     Dosage: UNK
     Route: 040
     Dates: start: 20181214
  10. CARVEDILOL. [Concomitant]
     Active Substance: CARVEDILOL
     Dosage: 5 MILLIGRAM, QD
     Route: 048
  11. NIFEDIPINE. [Concomitant]
     Active Substance: NIFEDIPINE
     Indication: HYPERTENSION
     Dosage: 10 MILLIGRAM, BID
     Route: 048
  12. FLUOROURACIL. [Concomitant]
     Active Substance: FLUOROURACIL
     Dosage: 3650 MILLIGRAM, Q2WEEKS
     Route: 041
     Dates: start: 20171215, end: 20171215
  13. FLUOROURACIL. [Concomitant]
     Active Substance: FLUOROURACIL
     Dosage: UNK
     Route: 041
     Dates: start: 20190205
  14. OXALIPLATIN. [Concomitant]
     Active Substance: OXALIPLATIN
     Dosage: 130 MILLIGRAM, Q2WEEKS
     Route: 041
     Dates: start: 20171215, end: 20171215
  15. CALCIUM LEVOFOLINATE [Concomitant]
     Active Substance: LEVOLEUCOVORIN CALCIUM
     Dosage: 300 MILLIGRAM, Q2WEEKS
     Route: 041
     Dates: start: 20171110, end: 20171110
  16. 5-FU [FLUOROURACIL] [Concomitant]
     Active Substance: FLUOROURACIL
     Dosage: 600 MILLIGRAM, Q2WK
     Route: 040
     Dates: start: 20171013, end: 20171013
  17. 5-FU [FLUOROURACIL] [Concomitant]
     Active Substance: FLUOROURACIL
     Dosage: UNK
     Route: 041
     Dates: start: 20180112, end: 20180323
  18. FLUOROURACIL. [Concomitant]
     Active Substance: FLUOROURACIL
     Dosage: UNK
     Route: 041
     Dates: start: 20180112, end: 20180323
  19. FLUOROURACIL. [Concomitant]
     Active Substance: FLUOROURACIL
     Dosage: UNK
     Route: 041
     Dates: start: 20181214
  20. 5-FU [FLUOROURACIL] [Concomitant]
     Active Substance: FLUOROURACIL
     Dosage: UNK
     Route: 041
     Dates: start: 20190205
  21. CARVEDILOL. [Concomitant]
     Active Substance: CARVEDILOL
     Indication: HYPERTENSION
     Dosage: 5 MILLIGRAM, QD
     Route: 048
  22. TELMISARTAN. [Concomitant]
     Active Substance: TELMISARTAN
     Indication: HYPERTENSION
     Dosage: 20 MILLIGRAM, BID
     Route: 048
  23. FLUOROURACIL. [Concomitant]
     Active Substance: FLUOROURACIL
     Dosage: 3650 MILLIGRAM, Q2WEEKS
     Route: 041
     Dates: start: 20171013, end: 20171013
  24. FLUOROURACIL. [Concomitant]
     Active Substance: FLUOROURACIL
     Dosage: 3650 MILLIGRAM, Q2WEEKS
     Route: 041
     Dates: start: 20171110, end: 20171110
  25. FLUOROURACIL. [Concomitant]
     Active Substance: FLUOROURACIL
     Dosage: UNK
     Route: 041
     Dates: start: 20180420
  26. PANITUMUMAB [Suspect]
     Active Substance: PANITUMUMAB
     Indication: COLON CANCER STAGE IV
     Dosage: 330 MILLIGRAM, Q2WK
     Route: 041
     Dates: start: 20161125, end: 20170224
  27. PANITUMUMAB [Suspect]
     Active Substance: PANITUMUMAB
     Dosage: 3.6 MILLIGRAM/KILOGRAM, Q2WK
     Route: 041
     Dates: start: 20171215, end: 20171215
  28. CALCIUM LEVOFOLINATE [Concomitant]
     Active Substance: LEVOLEUCOVORIN CALCIUM
     Dosage: 300 MILLIGRAM, Q2WEEKS
     Route: 041
     Dates: start: 20171215, end: 20171215
  29. 5-FU [FLUOROURACIL] [Concomitant]
     Active Substance: FLUOROURACIL
     Indication: COLON CANCER STAGE IV
     Dosage: 600 MILLIGRAM, Q2WK
     Route: 040
     Dates: start: 20161125, end: 20170224
  30. 5-FU [FLUOROURACIL] [Concomitant]
     Active Substance: FLUOROURACIL
     Dosage: 3650 MILLIGRAM, Q2WK
     Route: 041
     Dates: start: 20170526, end: 20170915
  31. VECTIBIX [Suspect]
     Active Substance: PANITUMUMAB
     Dosage: 4.8 MILLIGRAM/KILOGRAM, Q2WEEKS
     Route: 041
     Dates: start: 20171013, end: 20171013
  32. VECTIBIX [Suspect]
     Active Substance: PANITUMUMAB
     Dosage: 3.6 MILLIGRAM/KILOGRAM, Q2WEEKS
     Route: 041
     Dates: start: 20171215, end: 20171215
  33. FLUOROURACIL. [Concomitant]
     Active Substance: FLUOROURACIL
     Indication: COLON CANCER STAGE IV
     Dosage: 3650 MILLIGRAM, Q2WEEKS
     Route: 041
     Dates: start: 20161125, end: 20170224
  34. FLUOROURACIL. [Concomitant]
     Active Substance: FLUOROURACIL
     Dosage: 3650 MILLIGRAM, Q2WEEKS
     Route: 041
     Dates: start: 20170324, end: 20170421
  35. OXALIPLATIN. [Concomitant]
     Active Substance: OXALIPLATIN
     Dosage: 130 MILLIGRAM, Q2WEEKS
     Route: 041
     Dates: start: 20170324, end: 20170421
  36. CALCIUM LEVOFOLINATE [Concomitant]
     Active Substance: LEVOLEUCOVORIN CALCIUM
     Dosage: 300 MILLIGRAM, Q2WEEKS
     Route: 041
     Dates: start: 20171013, end: 20171013
  37. 5-FU [FLUOROURACIL] [Concomitant]
     Active Substance: FLUOROURACIL
     Dosage: 3650 MILLIGRAM, Q2WK
     Route: 041
     Dates: start: 20161125, end: 20170224
  38. 5-FU [FLUOROURACIL] [Concomitant]
     Active Substance: FLUOROURACIL
     Dosage: UNK
     Route: 041
     Dates: start: 20180420
  39. VECTIBIX [Suspect]
     Active Substance: PANITUMUMAB
     Dosage: 330 MILLIGRAM, Q2WEEKS
     Route: 041
     Dates: start: 20170324, end: 20170421
  40. PANITUMUMAB [Suspect]
     Active Substance: PANITUMUMAB
     Dosage: 330 MILLIGRAM, Q2WK
     Route: 041
     Dates: start: 20170324, end: 20170421
  41. OXALIPLATIN. [Concomitant]
     Active Substance: OXALIPLATIN
     Dosage: 130 MILLIGRAM, Q2WEEKS
     Route: 041
     Dates: start: 20171013, end: 20171013
  42. OXALIPLATIN. [Concomitant]
     Active Substance: OXALIPLATIN
     Dosage: 130 MILLIGRAM, Q2WEEKS
     Route: 041
     Dates: start: 20171110, end: 20171110
  43. NIFEDIPINE. [Concomitant]
     Active Substance: NIFEDIPINE
     Dosage: 10 MILLIGRAM, BID
     Route: 048
  44. VECTIBIX [Suspect]
     Active Substance: PANITUMUMAB
     Indication: COLON CANCER STAGE IV
     Dosage: 330 MILLIGRAM, Q2WEEKS
     Route: 041
     Dates: start: 20161125, end: 20170224
  45. PANITUMUMAB [Suspect]
     Active Substance: PANITUMUMAB
     Dosage: 330 MILLIGRAM, Q2WK
     Route: 041
     Dates: start: 20170526, end: 20170915
  46. PANITUMUMAB [Suspect]
     Active Substance: PANITUMUMAB
     Dosage: 4.8 MILLIGRAM/KILOGRAM, Q2WK
     Route: 041
     Dates: start: 20171013, end: 20171013
  47. OXALIPLATIN. [Concomitant]
     Active Substance: OXALIPLATIN
     Indication: COLON CANCER STAGE IV
     Dosage: 130 MILLIGRAM, Q2WEEKS
     Route: 041
     Dates: start: 20161125, end: 20170224
  48. CALCIUM LEVOFOLINATE [Concomitant]
     Active Substance: LEVOLEUCOVORIN CALCIUM
     Dosage: 300 MILLIGRAM, Q2WEEKS
     Route: 041
     Dates: start: 20170324, end: 20170421
  49. 5-FU [FLUOROURACIL] [Concomitant]
     Active Substance: FLUOROURACIL
     Dosage: 3650 MILLIGRAM, Q2WK
     Route: 041
     Dates: start: 20170324, end: 20170421
  50. 5-FU [FLUOROURACIL] [Concomitant]
     Active Substance: FLUOROURACIL
     Dosage: 3650 MILLIGRAM, Q2WK
     Route: 041
     Dates: start: 20171110, end: 20171110
  51. 5-FU [FLUOROURACIL] [Concomitant]
     Active Substance: FLUOROURACIL
     Dosage: UNK
     Route: 040
     Dates: start: 20190205
  52. TELMISARTAN. [Concomitant]
     Active Substance: TELMISARTAN
     Dosage: 20 MILLIGRAM, BID
     Route: 048
  53. VECTIBIX [Suspect]
     Active Substance: PANITUMUMAB
     Dosage: 330 MILLIGRAM, Q2WEEKS
     Route: 041
     Dates: start: 20170526, end: 20170915
  54. OXALIPLATIN. [Concomitant]
     Active Substance: OXALIPLATIN
     Dosage: 130 MILLIGRAM, Q2WEEKS
     Route: 041
     Dates: start: 20170526, end: 20170915
  55. CALCIUM LEVOFOLINATE [Concomitant]
     Active Substance: LEVOLEUCOVORIN CALCIUM
     Dosage: 300 MILLIGRAM, Q2WEEKS
     Route: 041
     Dates: start: 20170526, end: 20170915
  56. CALCIUM LEVOFOLINATE [Concomitant]
     Active Substance: LEVOLEUCOVORIN CALCIUM
     Dosage: UNK
     Route: 041
     Dates: start: 20180112, end: 20180323
  57. 5-FU [FLUOROURACIL] [Concomitant]
     Active Substance: FLUOROURACIL
     Dosage: 600 MILLIGRAM, Q2WK
     Route: 040
     Dates: start: 20170324, end: 20170421
  58. 5-FU [FLUOROURACIL] [Concomitant]
     Active Substance: FLUOROURACIL
     Dosage: 3650 MILLIGRAM, Q2WK
     Route: 041
     Dates: start: 20171215, end: 20171215
  59. 5-FU [FLUOROURACIL] [Concomitant]
     Active Substance: FLUOROURACIL
     Dosage: UNK
     Route: 041
     Dates: start: 20181214
  60. FLUOROURACIL. [Concomitant]
     Active Substance: FLUOROURACIL
     Dosage: 3650 MILLIGRAM, Q2WEEKS
     Route: 041
     Dates: start: 20170526, end: 20170915

REACTIONS (5)
  - Stomatitis [Recovered/Resolved]
  - Neutrophil count decreased [Recovered/Resolved]
  - Malaise [Recovered/Resolved]
  - Paronychia [Recovered/Resolved]
  - Catheter site ulcer [Recovered/Resolved]

NARRATIVE: CASE EVENT DATE: 20170915
